FAERS Safety Report 5041682-3 (Version None)
Quarter: 2006Q2

REPORT INFORMATION
  Report Type: 
  Country: None (occurrence: None)
  Receive Date: 20060630
  Receipt Date: 20060622
  Transmission Date: 20061013
  Serious: Yes (Death, Other)
  Sender: FDA-Public Use
  Company Number: 163-20785-06010337

PATIENT
  Age: 83 Year
  Sex: Female

DRUGS (9)
  1. THALOMID [Suspect]
     Indication: MULTIPLE MYELOMA
     Dosage: 1 IN 1 D, ORAL
     Route: 048
     Dates: start: 20040308, end: 20040420
  2. DECADRON [Concomitant]
  3. FOLIC ACID [Concomitant]
  4. POTASSIUM CHLORIDE [Concomitant]
  5. SYNTHROID [Concomitant]
  6. ZOCOR [Concomitant]
  7. M.V.I. [Concomitant]
  8. PROCRIT [Concomitant]
  9. ARANESP [Concomitant]

REACTIONS (2)
  - ACUTE LEUKAEMIA [None]
  - MYELODYSPLASTIC SYNDROME [None]
